FAERS Safety Report 5562990-3 (Version None)
Quarter: 2007Q4

REPORT INFORMATION
  Report Type: 
  Country: None (occurrence: None)
  Receive Date: 20071217
  Receipt Date: 20071214
  Transmission Date: 20080405
  Serious: Yes (Disabling)
  Sender: FDA-Public Use
  Company Number: A0698992A

PATIENT
  Age: 57 Year
  Sex: Male

DRUGS (1)
  1. CITRUCEL CAPLETS [Suspect]
     Route: 048

REACTIONS (3)
  - BLOOD URIC ACID INCREASED [None]
  - NEPHROLITHIASIS [None]
  - PH URINE DECREASED [None]
